FAERS Safety Report 5879531-3 (Version None)
Quarter: 2008Q3

REPORT INFORMATION
  Report Type: 
  Country: None (occurrence: None)
  Receive Date: 20080911
  Receipt Date: 20080911
  Transmission Date: 20090109
  Serious: Yes (Other)
  Sender: FDA-Public Use
  Company Number: None

PATIENT
  Sex: Female
  Weight: 62.1428 kg

DRUGS (2)
  1. ABILIFY [Suspect]
     Indication: AFFECTIVE DISORDER
     Dosage: 5 UP TO 25 MG DAILY PO
     Route: 048
     Dates: start: 20070822, end: 20080720
  2. ABILIFY [Suspect]
     Indication: PSYCHOTIC DISORDER
     Dosage: 5 UP TO 25 MG DAILY PO
     Route: 048
     Dates: start: 20070822, end: 20080720

REACTIONS (5)
  - ABDOMINAL PAIN UPPER [None]
  - ANOREXIA [None]
  - DECREASED APPETITE [None]
  - VOMITING [None]
  - WEIGHT DECREASED [None]
